FAERS Safety Report 19412159 (Version 2)
Quarter: 2021Q2

REPORT INFORMATION
  Report Type: Report from Study
  Country: US (occurrence: US)
  Receive Date: 20210614
  Receipt Date: 20210630
  Transmission Date: 20210717
  Serious: No
  Sender: FDA-Public Use
  Company Number: NVSC2021US130731

PATIENT
  Sex: Female

DRUGS (1)
  1. MAYZENT [Suspect]
     Active Substance: SIPONIMOD
     Indication: MULTIPLE SCLEROSIS
     Dosage: 1 MG, QD
     Route: 048

REACTIONS (11)
  - Swollen tongue [Unknown]
  - Burning sensation [Unknown]
  - Pain [Unknown]
  - Back pain [Unknown]
  - Rib fracture [Unknown]
  - Energy increased [Unknown]
  - Limb discomfort [Unknown]
  - Dizziness [Unknown]
  - Hypoaesthesia [Unknown]
  - Insomnia [Unknown]
  - Headache [Unknown]
